FAERS Safety Report 6695866-9 (Version None)
Quarter: 2010Q2

REPORT INFORMATION
  Report Type: 
  Country: None (occurrence: None)
  Receive Date: 20100426
  Receipt Date: 20090811
  Transmission Date: 20101027
  Serious: No
  Sender: FDA-Public Use
  Company Number: A0801628A

PATIENT

DRUGS (15)
  1. ZOFRAN [Suspect]
     Dosage: 2MGML AS REQUIRED
     Route: 042
     Dates: start: 19910101
  2. PREDNISONE [Concomitant]
  3. PROTONIX [Concomitant]
  4. SYNTHROID [Concomitant]
  5. CLARITHROMYCIN [Concomitant]
  6. MIRALAX [Concomitant]
  7. PROBIOTICS [Concomitant]
  8. ATIVAN [Concomitant]
  9. KLONOPIN [Concomitant]
  10. VITAMIN D [Concomitant]
  11. UNKNOWN MEDICATION [Concomitant]
  12. POTASSIUM [Concomitant]
  13. ATENOLOL [Concomitant]
  14. TPN [Concomitant]
  15. OTHER MEDICATIONS [Concomitant]

REACTIONS (5)
  - INJECTION SITE PAIN [None]
  - INJECTION SITE PRURITUS [None]
  - INJECTION SITE REACTION [None]
  - INJECTION SITE SWELLING [None]
  - ORAL PRURITUS [None]
